FAERS Safety Report 7930310-2 (Version None)
Quarter: 2011Q4

REPORT INFORMATION
  Report Type: 
  Country: None (occurrence: None)
  Receive Date: 20111117
  Receipt Date: 20111108
  Transmission Date: 20120403
  Serious: Yes (Death)
  Sender: FDA-Public Use
  Company Number: VISP-PR-1003S-0145

PATIENT
  Age: 72 Year
  Sex: Female

DRUGS (3)
  1. FENTANYL [Suspect]
     Indication: ANAESTHESIA
     Dates: start: 20100318, end: 20100318
  2. VISIPAQUE [Suspect]
     Indication: ANGIOPATHY
     Dosage: 36 ML, SINGLE DOSE
     Dates: start: 20100318, end: 20100318
  3. VERSED [Suspect]
     Indication: ANAESTHESIA
     Dates: start: 20100318, end: 20100318

REACTIONS (1)
  - UNRESPONSIVE TO STIMULI [None]
